FAERS Safety Report 5188703-5 (Version None)
Quarter: 2006Q4

REPORT INFORMATION
  Report Type: 
  Country: None (occurrence: None)
  Receive Date: 20061214
  Receipt Date: 20061205
  Transmission Date: 20070319
  Serious: Yes (Other)
  Sender: FDA-Public Use
  Company Number: 2006130828

PATIENT
  Age: 52 Year
  Sex: Male

DRUGS (4)
  1. LYRICA [Suspect]
     Indication: NEURALGIA
     Dosage: 300 MG (150 MG, 2 IN 1 D), ORAL
     Route: 048
     Dates: start: 20060614, end: 20060704
  2. BENESTAN (ALFUZOSIN HYDROCHLORIDE) [Concomitant]
  3. TRAMADOL HCL [Concomitant]
  4. BACLOFEN [Concomitant]

REACTIONS (1)
  - INTESTINAL OBSTRUCTION [None]
